FAERS Safety Report 12100712 (Version 2)
Quarter: 2016Q3

REPORT INFORMATION
  Report Type: Spontaneous
  Country: US (occurrence: US)
  Receive Date: 20160222
  Receipt Date: 20160824
  Transmission Date: 20161109
  Serious: No
  Sender: FDA-Public Use
  Company Number: US-BAYER-2016-032529

PATIENT
  Age: 41 Year
  Sex: Female

DRUGS (2)
  1. ESTRADIOL. [Suspect]
     Active Substance: ESTRADIOL
     Indication: HORMONE REPLACEMENT THERAPY
     Dosage: 0.06 MG, OW
     Route: 062
  2. ESTRADIOL. [Suspect]
     Active Substance: ESTRADIOL
     Indication: HORMONE REPLACEMENT THERAPY
     Dosage: 0.06 MG, OW
     Route: 062
     Dates: start: 2006, end: 2006

REACTIONS (5)
  - Headache [None]
  - Scab [Recovered/Resolved]
  - Product use issue [None]
  - Rash pruritic [Recovered/Resolved]
  - Product adhesion issue [None]
